FAERS Safety Report 9813349 (Version 4)
Quarter: 2014Q3

REPORT INFORMATION
  Report Type: Spontaneous
  Country: US (occurrence: US)
  Receive Date: 20140113
  Receipt Date: 20140715
  Transmission Date: 20150326
  Serious: Yes (Hospitalization)
  Sender: FDA-Public Use
  Company Number: US-009507513-1401USA001380

PATIENT
  Sex: Male

DRUGS (2)
  1. FINASTERIDE. [Suspect]
     Active Substance: FINASTERIDE
     Indication: ALOPECIA
     Dosage: 5 MG, QD
     Route: 048
     Dates: start: 20071228, end: 20110225
  2. PROPECIA [Suspect]
     Active Substance: FINASTERIDE
     Indication: ALOPECIA
     Dosage: 1 MG, QD
     Route: 048
     Dates: start: 20050816, end: 20071110

REACTIONS (12)
  - Dysuria [Unknown]
  - Fatigue [Not Recovered/Not Resolved]
  - Penile wart [Unknown]
  - Affective disorder [Not Recovered/Not Resolved]
  - Painful ejaculation [Recovering/Resolving]
  - Varicocele [Unknown]
  - Sexual dysfunction [Not Recovered/Not Resolved]
  - Ankle fracture [Unknown]
  - Erectile dysfunction [Recovering/Resolving]
  - Loss of libido [Not Recovered/Not Resolved]
  - Semen volume decreased [Unknown]
  - Drug administration error [Unknown]

NARRATIVE: CASE EVENT DATE: 20051116
